FAERS Safety Report 10479606 (Version 2)
Quarter: 2014Q3

REPORT INFORMATION
  Report Type: Report from Study
  Country: US (occurrence: US)
  Receive Date: 20140927
  Receipt Date: 20140927
  Transmission Date: 20150326
  Serious: Yes (Other)
  Sender: FDA-Public Use
  Company Number: US-ALEXION PHARMACEUTICALS INC-A200700305

PATIENT
  Sex: Male

DRUGS (1)
  1. SOLIRIS [Suspect]
     Active Substance: ECULIZUMAB
     Indication: PAROXYSMAL NOCTURNAL HAEMOGLOBINURIA
     Dosage: UNK
     Route: 042

REACTIONS (14)
  - Haemoglobinuria [Unknown]
  - Emotional disorder [Unknown]
  - Abdominal pain [Unknown]
  - Cough [Unknown]
  - Staphylococcal infection [Unknown]
  - Haemoglobin decreased [Unknown]
  - Oedema peripheral [Unknown]
  - Chest pain [Unknown]
  - Chromaturia [Unknown]
  - Dyspnoea [Unknown]
  - Haematuria [Unknown]
  - Blood urine present [Unknown]
  - Haemolysis [Unknown]
  - Fatigue [Unknown]
